FAERS Safety Report 20909912 (Version 1)
Quarter: 2022Q2

REPORT INFORMATION
  Report Type: Report from Study
  Country: IL (occurrence: IL)
  Receive Date: 20220603
  Receipt Date: 20220603
  Transmission Date: 20220721
  Serious: Yes (Other)
  Sender: FDA-Public Use
  Company Number: IL-JNJFOC-20220560089

PATIENT

DRUGS (2)
  1. HALDOL [Suspect]
     Active Substance: HALOPERIDOL
     Indication: Riley-Day syndrome
     Route: 065
  2. RISPERDAL [Suspect]
     Active Substance: RISPERIDONE
     Indication: Riley-Day syndrome
     Route: 065

REACTIONS (8)
  - Choking [Unknown]
  - Salivary hypersecretion [Unknown]
  - Dystonia [Unknown]
  - Sensory loss [Unknown]
  - Apathy [Unknown]
  - Laryngospasm [Unknown]
  - Vomiting [Unknown]
  - Off label use [Unknown]
